FAERS Safety Report 24982949 (Version 1)
Quarter: 2025Q1

REPORT INFORMATION
  Report Type: Spontaneous
  Country: FR (occurrence: FR)
  Receive Date: 20250218
  Receipt Date: 20250218
  Transmission Date: 20250409
  Serious: Yes (Life-Threatening, Hospitalization, Other)
  Sender: SANOFI AVENTIS
  Company Number: None

PATIENT
  Age: 57 Year
  Sex: Female
  Weight: 90 kg

DRUGS (7)
  1. LOVENOX [Suspect]
     Active Substance: ENOXAPARIN SODIUM
     Indication: Anticoagulant therapy
     Dosage: 6000 IU, Q12H
     Route: 058
     Dates: start: 20250127, end: 20250129
  2. LOVENOX [Suspect]
     Active Substance: ENOXAPARIN SODIUM
     Dosage: 8000 IU, Q12H
     Route: 058
     Dates: start: 20250129
  3. ASPIRIN [Suspect]
     Active Substance: ASPIRIN
     Indication: Stent placement
     Dosage: 100 MG, QD
     Route: 048
     Dates: start: 20250128
  4. TICAGRELOR [Suspect]
     Active Substance: TICAGRELOR
     Indication: Stent placement
     Dosage: 90 MG, Q12H
     Route: 048
     Dates: start: 20250127, end: 20250130
  5. ATORVASTATIN [Concomitant]
     Active Substance: ATORVASTATIN
     Indication: Ischaemic heart disease prophylaxis
     Dosage: 80 MG, QD
     Route: 048
     Dates: start: 20250127
  6. COLCHICINE [Concomitant]
     Active Substance: COLCHICINE
     Indication: Ischaemic heart disease prophylaxis
     Dosage: 0.5 MG, QD
     Route: 048
     Dates: start: 20250128
  7. LEVOTHYROXINE SODIUM [Concomitant]
     Active Substance: LEVOTHYROXINE SODIUM
     Indication: Ischaemic heart disease prophylaxis
     Dosage: 100 UG, QD
     Route: 048

REACTIONS (2)
  - Vascular stent thrombosis [Recovered/Resolved]
  - Drug ineffective [Recovered/Resolved]

NARRATIVE: CASE EVENT DATE: 20250129
